FAERS Safety Report 25084420 (Version 1)
Quarter: 2025Q1

REPORT INFORMATION
  Report Type: Spontaneous
  Country: US (occurrence: US)
  Receive Date: 20250317
  Receipt Date: 20250317
  Transmission Date: 20250409
  Serious: No
  Sender: ROCHE
  Company Number: US-ROCHE-10000232055

PATIENT
  Age: 3 Decade
  Sex: Female

DRUGS (2)
  1. ERLOTINIB [Suspect]
     Active Substance: ERLOTINIB
     Indication: Olmsted syndrome
     Route: 048
  2. ACITRETIN [Concomitant]
     Active Substance: ACITRETIN

REACTIONS (1)
  - Diarrhoea [Recovered/Resolved]
